FAERS Safety Report 5235519-7 (Version None)
Quarter: 2007Q1

REPORT INFORMATION
  Report Type: 
  Country: None (occurrence: None)
  Receive Date: 20070208
  Receipt Date: 20070208
  Transmission Date: 20070707
  Serious: Yes (Other)
  Sender: FDA-Public Use
  Company Number: None

PATIENT
  Age: 34 Year
  Sex: Female
  Weight: 185 kg

DRUGS (3)
  1. DEMEROL [Suspect]
     Indication: HEADACHE
     Dosage: 2 DOSES
     Dates: start: 20061108, end: 20061108
  2. DEMEROL [Suspect]
     Indication: NECK PAIN
     Dosage: 2 DOSES
     Dates: start: 20061108, end: 20061108
  3. PHENERGAN HCL [Suspect]

REACTIONS (5)
  - AGITATION [None]
  - ANXIETY [None]
  - CONFUSIONAL STATE [None]
  - HALLUCINATION [None]
  - RESPIRATORY DEPRESSION [None]
